FAERS Safety Report 15701716 (Version 1)
Quarter: 2018Q4

REPORT INFORMATION
  Report Type: Report from Study
  Country: US (occurrence: US)
  Receive Date: 20181208
  Receipt Date: 20181208
  Transmission Date: 20190205
  Serious: Yes (Hospitalization, Other)
  Sender: FDA-Public Use
  Company Number: US-AMGEN-USACT2018173700

PATIENT
  Age: 63 Year
  Sex: Male
  Weight: 104.5 kg

DRUGS (8)
  1. TALIMOGENE LAHERPAREPVEC [Suspect]
     Active Substance: TALIMOGENE LAHERPAREPVEC
     Dosage: UNK UNK, CYCLICAL (CYCLE2-5, 14DAYS, (10^8 PFU/ML) ON DAY 1)
     Route: 036
  2. NIVOLUMAB [Suspect]
     Active Substance: NIVOLUMAB
     Indication: T-CELL LYMPHOMA
     Dosage: 3 MG/KG, UNK (OVER 60 MINUTES ON DAY 1)
     Route: 042
     Dates: start: 20180613, end: 20180905
  3. CARVEDILOL. [Concomitant]
     Active Substance: CARVEDILOL
     Dosage: UNK
  4. OMEPRAZOLE. [Concomitant]
     Active Substance: OMEPRAZOLE
     Dosage: UNK
  5. TALIMOGENE LAHERPAREPVEC [Suspect]
     Active Substance: TALIMOGENE LAHERPAREPVEC
     Dosage: UNK UNK, CYCLICAL (CYCLE6 AND PLUS, 14DAYS, (10^8 PFU/ML) ON DAY1)
     Route: 036
     Dates: end: 20180905
  6. TALIMOGENE LAHERPAREPVEC [Suspect]
     Active Substance: TALIMOGENE LAHERPAREPVEC
     Indication: T-CELL LYMPHOMA
     Dosage: UNK UNK, CYCLICAL (CYCLE1, 21 DAYS, (10^6 PFU/ML) ON DAY 1)
     Route: 036
     Dates: start: 20180328
  7. AMLODIPINE [Concomitant]
     Active Substance: AMLODIPINE BESYLATE
     Dosage: UNK
  8. LISINOPRIL. [Concomitant]
     Active Substance: LISINOPRIL
     Dosage: UNK

REACTIONS (1)
  - Glomerulonephritis proliferative [Recovered/Resolved with Sequelae]

NARRATIVE: CASE EVENT DATE: 20180914
